FAERS Safety Report 11264233 (Version 1)
Quarter: 2015Q3

REPORT INFORMATION
  Report Type: Spontaneous
  Country: US (occurrence: US)
  Receive Date: 20150713
  Receipt Date: 20150713
  Transmission Date: 20151125
  Serious: No
  Sender: FDA-Public Use
  Company Number: US-JNJFOC-20150616256

PATIENT
  Sex: Female
  Weight: 48.99 kg

DRUGS (2)
  1. DURAGESIC [Suspect]
     Active Substance: FENTANYL
     Indication: INJURY
     Route: 062
     Dates: start: 201409
  2. DURAGESIC [Suspect]
     Active Substance: FENTANYL
     Indication: PELVIC PAIN
     Route: 062
     Dates: start: 201409

REACTIONS (2)
  - Pain [Unknown]
  - Adverse event [Unknown]
